FAERS Safety Report 5609492-3 (Version None)
Quarter: 2008Q1

REPORT INFORMATION
  Report Type: 
  Country: None (occurrence: None)
  Receive Date: 20080131
  Receipt Date: 20080124
  Transmission Date: 20080703
  Serious: Yes (Other)
  Sender: FDA-Public Use
  Company Number: US-PFIZER INC-2008008252

PATIENT
  Sex: Male
  Weight: 63.5 kg

DRUGS (3)
  1. VIAGRA [Suspect]
     Indication: PROSTATIC OPERATION
  2. VIAGRA [Suspect]
     Indication: TESTICULAR OPERATION
  3. DETROL [Concomitant]
     Indication: POLLAKIURIA

REACTIONS (2)
  - FREQUENT BOWEL MOVEMENTS [None]
  - RECTAL PROLAPSE [None]
